FAERS Safety Report 7320493-X (Version None)
Quarter: 2011Q1

REPORT INFORMATION
  Report Type: 
  Country: None (occurrence: None)
  Receive Date: 20110228
  Receipt Date: 20110222
  Transmission Date: 20110831
  Serious: Yes (Hospitalization, Disabling, Other)
  Sender: FDA-Public Use
  Company Number: D0069977A

PATIENT
  Sex: Male
  Weight: 59 kg

DRUGS (3)
  1. PANTOZOL [Concomitant]
     Dosage: 40MG AS REQUIRED
     Route: 065
  2. VIRAMUNE [Suspect]
     Indication: HIV INFECTION
     Dosage: 400MG PER DAY
     Route: 048
     Dates: start: 20090724, end: 20101223
  3. KIVEXA [Suspect]
     Indication: HIV INFECTION
     Dosage: 900MG PER DAY
     Route: 048
     Dates: start: 20081010, end: 20101223

REACTIONS (3)
  - ACUTE ABDOMEN [None]
  - ILEUS [None]
  - ACUTE MYOCARDIAL INFARCTION [None]
